FAERS Safety Report 23827373 (Version 1)
Quarter: 2024Q2

REPORT INFORMATION
  Report Type: Spontaneous
  Country: LV (occurrence: LV)
  Receive Date: 20240507
  Receipt Date: 20240507
  Transmission Date: 20240716
  Serious: Yes (Hospitalization)
  Sender: FDA-Public Use
  Company Number: None

PATIENT
  Age: 48 Year
  Sex: Male

DRUGS (1)
  1. HYRIMOZ [Suspect]
     Active Substance: ADALIMUMAB-ADAZ
     Indication: Psoriasis
     Dosage: ONE INJECTION TWICE A WEEK
     Route: 058
     Dates: start: 20230322, end: 20240229

REACTIONS (2)
  - Cardiac failure chronic [Recovering/Resolving]
  - Cardiac fibrillation [Recovering/Resolving]

NARRATIVE: CASE EVENT DATE: 20240205
